FAERS Safety Report 7834320-5 (Version None)
Quarter: 2011Q4

REPORT INFORMATION
  Report Type: 
  Country: None (occurrence: None)
  Receive Date: 20111024
  Receipt Date: 20111021
  Transmission Date: 20120403
  Serious: Yes (Hospitalization)
  Sender: FDA-Public Use
  Company Number: PHHY2011PH92958

PATIENT
  Age: 70 Year
  Sex: Female

DRUGS (4)
  1. LEVODOPA [Concomitant]
     Indication: PARKINSON'S DISEASE
  2. ZOLEDRONOC ACID [Suspect]
     Indication: OSTEOPOROSIS
     Dosage: 5 MG/100ML
     Route: 042
     Dates: start: 20111014
  3. CARBIDOPA [Concomitant]
     Indication: PARKINSON'S DISEASE
  4. ALDOMET [Concomitant]
     Indication: HYPERTENSION

REACTIONS (4)
  - DECREASED APPETITE [None]
  - ORAL DISCOMFORT [None]
  - GAIT DISTURBANCE [None]
  - MUSCLE SPASMS [None]
